FAERS Safety Report 6754118-9 (Version None)
Quarter: 2010Q2

REPORT INFORMATION
  Report Type: 
  Country: None (occurrence: None)
  Receive Date: 20100603
  Receipt Date: 20100524
  Transmission Date: 20101027
  Serious: Yes (Other)
  Sender: FDA-Public Use
  Company Number: US-GENENTECH-301188

PATIENT
  Sex: Male
  Weight: 65.76 kg

DRUGS (1)
  1. NUTROPIN AQ [Suspect]
     Indication: GROWTH HORMONE DEFICIENCY
     Dosage: 1.4 MG, QD
     Route: 058
     Dates: start: 20060901, end: 20100421

REACTIONS (1)
  - OSTEOCHONDROSIS [None]
